FAERS Safety Report 8575247-3 (Version None)
Quarter: 2012Q3

REPORT INFORMATION
  Report Type: 
  Country: None (occurrence: None)
  Receive Date: 20120807
  Receipt Date: 20120801
  Transmission Date: 20120928
  Serious: Yes (Life-Threatening, Other)
  Sender: FDA-Public Use
  Company Number: US-ROXANE LABORATORIES, INC.-2012-RO-01625RO

PATIENT
  Age: 68 Year
  Sex: Female
  Weight: 84 kg

DRUGS (26)
  1. OXYCODONE HCL [Suspect]
  2. DULOXETIME HYDROCHLORIDE [Suspect]
  3. ALENDRONATE SODIUM [Suspect]
  4. HYDROMORPHONE HYDROCHLORIDE [Suspect]
  5. MIDAZOLAM [Suspect]
     Indication: PREMEDICATION
  6. FENTANYL [Suspect]
     Indication: INDUCTION OF ANAESTHESIA
  7. TIAGABINE HYDROCHLORIDE [Suspect]
  8. ONDANSETRON [Suspect]
  9. FENTANYL [Suspect]
     Indication: PAIN
  10. SUCCINYLCHOLINE CHLORIDE [Suspect]
     Indication: INDUCTION OF ANAESTHESIA
  11. DESFLURANE [Suspect]
     Indication: MAINTENANCE OF ANAESTHESIA
  12. CLONAZEPAM [Suspect]
  13. LISINOPRIL [Suspect]
  14. PAROXETINE HCL [Suspect]
  15. SENNA-MINT WAF [Suspect]
  16. LEVOTHYROXINE SODIUM [Suspect]
  17. FLUDROCORTISONE ACETATE [Suspect]
  18. BUPROPION HCL [Suspect]
  19. TRIAMTERENE AND HYDROCHLOROTHIAZIDE [Suspect]
  20. MULTI-VITAMIN [Suspect]
  21. CALCIUM CARBONATE [Suspect]
  22. NITROUS OXIDE [Suspect]
     Indication: MAINTENANCE OF ANAESTHESIA
  23. GABAPENTIN [Suspect]
  24. ATORVASTATIN [Suspect]
  25. PROPOFOL [Suspect]
     Indication: INDUCTION OF ANAESTHESIA
  26. OMEPRAZOLE [Suspect]

REACTIONS (1)
  - SEROTONIN SYNDROME [None]
